FAERS Safety Report 8814149 (Version 1)
Quarter: 2012Q4

REPORT INFORMATION
  Report Type: 
  Country: CA (occurrence: CA)
  Receive Date: 20120928
  Receipt Date: 20120928
  Transmission Date: 20130627
  Serious: Yes (Other)
  Sender: FDA-Public Use
  Company Number: CA-BAYER-2012-099005

PATIENT
  Age: 56 Year
  Sex: Female

DRUGS (2)
  1. AVELOX [Suspect]
  2. VALTREX [Concomitant]

REACTIONS (1)
  - Eye haemorrhage [None]
